FAERS Safety Report 18292249 (Version 2)
Quarter: 2020Q4

REPORT INFORMATION
  Report Type: Spontaneous
  Country: US (occurrence: US)
  Receive Date: 20200921
  Receipt Date: 20201127
  Transmission Date: 20210113
  Serious: Yes (Hospitalization, Other)
  Sender: FDA-Public Use
  Company Number: US-BLUEPRINT MEDICINES CORPORATION-SP-US-2020-001013

PATIENT
  Sex: Male

DRUGS (1)
  1. AYVAKIT [Suspect]
     Active Substance: AVAPRITINIB
     Indication: GASTROINTESTINAL STROMAL TUMOUR
     Route: 048
     Dates: start: 20200229

REACTIONS (6)
  - Fall [Recovered/Resolved]
  - Diarrhoea [Unknown]
  - Cerebral haemorrhage [Unknown]
  - Nausea [Unknown]
  - Head injury [Unknown]
  - Dehydration [Unknown]
